FAERS Safety Report 5765246-9 (Version None)
Quarter: 2008Q2

REPORT INFORMATION
  Report Type: 
  Country: None (occurrence: None)
  Receive Date: 20080611
  Receipt Date: 20080605
  Transmission Date: 20081010
  Serious: Yes (Other)
  Sender: FDA-Public Use
  Company Number: US-ASTRAZENECA-2008UW11423

PATIENT
  Sex: Female

DRUGS (5)
  1. PULMICORT [Suspect]
     Route: 055
  2. DIOVAN [Concomitant]
  3. METOPROLOL [Concomitant]
     Route: 048
  4. AZITHROMYCIN [Concomitant]
  5. METHYLPRED [Concomitant]

REACTIONS (1)
  - BLOOD GLUCOSE INCREASED [None]
